FAERS Safety Report 6259170-5 (Version None)
Quarter: 2009Q3

REPORT INFORMATION
  Report Type: 
  Country: None (occurrence: None)
  Receive Date: 20090707
  Receipt Date: 20090702
  Transmission Date: 20100115
  Serious: Yes (Other)
  Sender: FDA-Public Use
  Company Number: US-AVENTIS-200915790US

PATIENT
  Sex: Male

DRUGS (2)
  1. LANTUS [Suspect]
     Dosage: DOSE: 38 UNITS AT 9:00 AM, 8 UNITS AT 9:00 PM
     Route: 058
     Dates: end: 20090601
  2. HUMALOG [Concomitant]
     Dosage: DOSE: SLIDING SCALE

REACTIONS (1)
  - HEPATIC NEOPLASM MALIGNANT [None]
